FAERS Safety Report 10154434 (Version 2)
Quarter: 2014Q2

REPORT INFORMATION
  Report Type: Report from Study
  Country: NL (occurrence: NL)
  Receive Date: 20140506
  Receipt Date: 20140506
  Transmission Date: 20141212
  Serious: Yes (Hospitalization)
  Sender: FDA-Public Use
  Company Number: NL-JNJFOC-20131006410

PATIENT
  Age: 69 Year
  Sex: Male
  Weight: 94 kg

DRUGS (13)
  1. RIVAROXABAN [Suspect]
     Indication: ATRIAL FIBRILLATION
     Route: 048
     Dates: start: 20130821
  2. RIVAROXABAN [Suspect]
     Indication: ATRIAL FIBRILLATION
     Route: 048
     Dates: start: 20130506, end: 20130817
  3. RIVAROXABAN [Suspect]
     Indication: CEREBROVASCULAR ACCIDENT PROPHYLAXIS
     Route: 048
     Dates: start: 20130506, end: 20130817
  4. RIVAROXABAN [Suspect]
     Indication: CEREBROVASCULAR ACCIDENT PROPHYLAXIS
     Route: 048
     Dates: start: 20130821
  5. METOPROLOL [Concomitant]
     Route: 065
     Dates: start: 20110504
  6. FLECAINIDE [Concomitant]
     Route: 065
     Dates: start: 20110504
  7. MEBEVERINE [Concomitant]
     Route: 065
     Dates: start: 20090730
  8. LOSARTAN [Concomitant]
     Route: 065
     Dates: start: 20060622
  9. MOVICOLON [Concomitant]
     Route: 065
     Dates: start: 20090730
  10. TAMSULOSIN [Concomitant]
     Route: 065
     Dates: start: 20080601
  11. OMEPRAZOLE [Concomitant]
     Route: 065
     Dates: start: 20090730
  12. ACENOCOUMAROL [Concomitant]
     Indication: ANTICOAGULANT THERAPY
     Route: 065
     Dates: start: 20110225, end: 20130503
  13. ROSUVASTATIN [Concomitant]
     Route: 065
     Dates: start: 20070824

REACTIONS (2)
  - Prostatism [Recovered/Resolved]
  - Urinary retention [Recovered/Resolved]
